FAERS Safety Report 4782508-2 (Version None)
Quarter: 2005Q3

REPORT INFORMATION
  Report Type: 
  Country: None (occurrence: None)
  Receive Date: 20050929
  Receipt Date: 20050119
  Transmission Date: 20060218
  Serious: No
  Sender: FDA-Public Use
  Company Number: 395897

PATIENT
  Age: 75 Year
  Sex: Female

DRUGS (9)
  1. COREG [Suspect]
     Indication: HYPERTENSION
     Dosage: 3.125MG PER DAY
     Route: 048
  2. PLAVIX [Concomitant]
  3. LIPITOR [Concomitant]
  4. NITROGLYCERIN [Concomitant]
  5. LEXAPRO [Concomitant]
  6. METOPROLOL [Concomitant]
  7. ZETIA [Concomitant]
  8. ALTACE [Concomitant]
  9. SYNTHROID [Concomitant]

REACTIONS (3)
  - DIZZINESS [None]
  - FATIGUE [None]
  - MYALGIA [None]
